FAERS Safety Report 22012401 (Version 1)
Quarter: 2023Q1

REPORT INFORMATION
  Report Type: Spontaneous
  Country: US (occurrence: US)
  Receive Date: 20230220
  Receipt Date: 20230220
  Transmission Date: 20230418
  Serious: Yes (Other)
  Sender: FDA-Public Use
  Company Number: US-AURINIA PHARMACEUTICALS INC.-AUR-002210

PATIENT
  Sex: Female

DRUGS (2)
  1. LUPKYNIS [Suspect]
     Active Substance: VOCLOSPORIN
     Indication: Lupus nephritis
     Dosage: 23.7 MILLIGRAM, BID
     Route: 048
     Dates: start: 20220831
  2. LUPKYNIS [Suspect]
     Active Substance: VOCLOSPORIN
     Dosage: 1 CAPSULE IN AM
     Route: 048

REACTIONS (4)
  - Hypertension [Unknown]
  - Abdominal distension [Unknown]
  - Abdominal pain [Unknown]
  - Incorrect dose administered [Unknown]
